FAERS Safety Report 5503952-1 (Version None)
Quarter: 2007Q4

REPORT INFORMATION
  Report Type: 
  Country: None (occurrence: None)
  Receive Date: 20071030
  Receipt Date: 20071030
  Transmission Date: 20080405
  Serious: Yes (Hospitalization)
  Sender: FDA-Public Use
  Company Number: None

PATIENT
  Age: 77 Year
  Sex: Male
  Weight: 58.9676 kg

DRUGS (1)
  1. INSULIN [Suspect]
     Indication: DIABETES MELLITUS
     Dosage: 32UNITS  EVERY DAY  SQ
     Route: 058
     Dates: start: 19951205

REACTIONS (3)
  - ASTHENIA [None]
  - DECREASED APPETITE [None]
  - HYPOGLYCAEMIA [None]
